FAERS Safety Report 9746583 (Version 2)
Quarter: 2013Q4

REPORT INFORMATION
  Report Type: Spontaneous
  Country: NL (occurrence: NL)
  Receive Date: 20131211
  Receipt Date: 20131223
  Transmission Date: 20140711
  Serious: Yes (Hospitalization)
  Sender: FDA-Public Use
  Company Number: NL-PFIZER INC-2013353116

PATIENT
  Age: 50 Year
  Sex: Female
  Weight: 97 kg

DRUGS (6)
  1. AMLODIPINE BESILATE [Suspect]
     Dosage: 10 MG, 1X/DAY
     Dates: start: 20131106, end: 20131122
  2. CICLOSPORIN [Concomitant]
     Dosage: 100 MG, 2X/DAY
     Dates: start: 2011
  3. ENALAPRIL [Concomitant]
     Dosage: 10 MG, 2X/DAY
  4. HYDROCHLOROTHIAZIDE [Concomitant]
     Dosage: 25 MG, 1X/DAY
  5. FAMOTIDINE [Concomitant]
     Dosage: 20 MG, 1X/DAY
  6. FLEBOGAMMA [Concomitant]
     Dosage: 39 G, UNK

REACTIONS (3)
  - Myasthenia gravis [Recovered/Resolved]
  - Dyspnoea exertional [Recovered/Resolved]
  - Asthenia [Recovered/Resolved]
